FAERS Safety Report 6903966-0 (Version None)
Quarter: 2010Q3

REPORT INFORMATION
  Report Type: 
  Country: None (occurrence: None)
  Receive Date: 20100804
  Receipt Date: 20090220
  Transmission Date: 20110219
  Serious: Yes (Other)
  Sender: FDA-Public Use
  Company Number: US-PFIZER INC-2009167248

PATIENT
  Age: 48 Year
  Sex: Female
  Weight: 63.492 kg

DRUGS (1)
  1. LYRICA [Suspect]
     Indication: SACROILIITIS
     Dosage: 75 MG, 3X/DAY

REACTIONS (1)
  - SUICIDAL IDEATION [None]
